FAERS Safety Report 6975734-5 (Version None)
Quarter: 2010Q3

REPORT INFORMATION
  Report Type: 
  Country: None (occurrence: None)
  Receive Date: 20100910
  Receipt Date: 20090421
  Transmission Date: 20110219
  Serious: No
  Sender: FDA-Public Use
  Company Number: US-WYE-H08743709

PATIENT
  Sex: Female
  Weight: 118.04 kg

DRUGS (8)
  1. PRISTIQ [Suspect]
     Indication: DEPRESSION
     Route: 048
     Dates: start: 20090327
  2. ASCORBIC ACID/ERGOCALCIFEROL/FOLIC ACID/NICOTINAMIDE/PANTHENOL/RETINOL [Concomitant]
  3. ENALAPRIL MALEATE [Concomitant]
  4. XANAX [Concomitant]
  5. WELCHOL [Concomitant]
  6. METFORMIN [Concomitant]
  7. ACETYLSALICYLIC ACID [Concomitant]
  8. ALBUTEROL [Concomitant]

REACTIONS (1)
  - SOMNOLENCE [None]
